FAERS Safety Report 12249276 (Version 1)
Quarter: 2016Q2

REPORT INFORMATION
  Report Type: Report from Study
  Country: US (occurrence: US)
  Receive Date: 20160408
  Receipt Date: 20160408
  Transmission Date: 20160815
  Serious: Yes (Hospitalization)
  Sender: FDA-Public Use
  Company Number: US-JNJFOC-20160103601

PATIENT
  Sex: Male

DRUGS (2)
  1. MULTIVITAMINS [Concomitant]
     Active Substance: VITAMINS
  2. IMBRUVICA [Suspect]
     Active Substance: IBRUTINIB
     Indication: NON-HODGKIN^S LYMPHOMA
     Route: 048
     Dates: start: 20151216

REACTIONS (6)
  - Stent placement [Unknown]
  - Chest discomfort [Unknown]
  - Off label use [Unknown]
  - Epistaxis [Unknown]
  - Dyspnoea [Unknown]
  - Rash [Unknown]
